FAERS Safety Report 16355420 (Version 1)
Quarter: 2019Q2

REPORT INFORMATION
  Report Type: Spontaneous
  Country: GR (occurrence: GR)
  Receive Date: 20190525
  Receipt Date: 20190525
  Transmission Date: 20190711
  Serious: Yes (Other)
  Sender: FDA-Public Use
  Company Number: GR-BRISTOL-MYERS SQUIBB COMPANY-BMS-2019-047062

PATIENT
  Age: 80 Year
  Sex: Male

DRUGS (1)
  1. OPDIVO [Suspect]
     Active Substance: NIVOLUMAB
     Indication: SMALL CELL LUNG CANCER
     Dosage: 10 OTHER (MG/ML)
     Route: 042
     Dates: start: 2017

REACTIONS (3)
  - Product use in unapproved indication [Unknown]
  - Rhabdomyolysis [Unknown]
  - Cardiomyopathy [Unknown]
